FAERS Safety Report 21392246 (Version 1)
Quarter: 2022Q3

REPORT INFORMATION
  Report Type: Spontaneous
  Country: CA (occurrence: CA)
  Receive Date: 20220929
  Receipt Date: 20220929
  Transmission Date: 20221027
  Serious: Yes (Other)
  Sender: FDA-Public Use
  Company Number: CA-ORGANON-O2209CAN002028

PATIENT
  Sex: Female

DRUGS (1)
  1. NEXPLANON [Suspect]
     Active Substance: ETONOGESTREL
     Dosage: 1 IMPLANT
     Route: 059
     Dates: start: 202202, end: 20220922

REACTIONS (4)
  - Pregnancy with implant contraceptive [Unknown]
  - Sensory disturbance [Unknown]
  - Unintended pregnancy [Unknown]
  - Depression [Unknown]

NARRATIVE: CASE EVENT DATE: 20220101
